FAERS Safety Report 9288958 (Version 1)
Quarter: 2013Q2

REPORT INFORMATION
  Report Type: Spontaneous
  Country: JP (occurrence: JP)
  Receive Date: 20130514
  Receipt Date: 20130514
  Transmission Date: 20140414
  Serious: Yes (Other)
  Sender: FDA-Public Use
  Company Number: JP-GLAXOSMITHKLINE-B0890802A

PATIENT
  Age: 47 Year
  Sex: Female

DRUGS (2)
  1. MALARONE [Suspect]
     Indication: PRODUCT USED FOR UNKNOWN INDICATION
     Route: 048
     Dates: start: 20130415, end: 20130422
  2. UNKNOWN DRUG [Concomitant]
     Route: 065

REACTIONS (1)
  - Urinary retention [Not Recovered/Not Resolved]
